FAERS Safety Report 25341762 (Version 1)
Quarter: 2025Q2

REPORT INFORMATION
  Report Type: Spontaneous
  Country: US (occurrence: US)
  Receive Date: 20250521
  Receipt Date: 20250521
  Transmission Date: 20250716
  Serious: No
  Sender: AMGEN
  Company Number: US-AMGEN-USASP2025096688

PATIENT
  Age: 63 Year
  Sex: Female
  Weight: 73.016 kg

DRUGS (2)
  1. REPATHA [Suspect]
     Active Substance: EVOLOCUMAB
     Indication: Product used for unknown indication
     Route: 065
  2. DUPIXENT [Concomitant]
     Active Substance: DUPILUMAB
     Dosage: 300 MILLIGRAM (STRENGTH: 300 MG/2ML)

REACTIONS (2)
  - Injection site bruising [Unknown]
  - Illness [Unknown]
